FAERS Safety Report 19825943 (Version 1)
Quarter: 2021Q3

REPORT INFORMATION
  Report Type: Spontaneous
  Country: US (occurrence: US)
  Receive Date: 20210914
  Receipt Date: 20210914
  Transmission Date: 20211014
  Serious: Yes (Hospitalization)
  Sender: FDA-Public Use
  Company Number: US-STRIDES ARCOLAB LIMITED-2020SP009151

PATIENT
  Age: 50 Year
  Sex: Female

DRUGS (4)
  1. PREDNISOLONE. [Suspect]
     Active Substance: PREDNISOLONE
     Indication: RENAL TRANSPLANT
     Dosage: 5 MILLIGRAM PER DAY (CHRONIC)
     Route: 065
  2. AMPHOTERICIN B, LIPOSOME [Interacting]
     Active Substance: AMPHOTERICIN B
     Indication: HISTOPLASMOSIS DISSEMINATED
     Dosage: UNK
     Route: 042
  3. TACROLIMUS. [Suspect]
     Active Substance: TACROLIMUS
     Indication: RENAL TRANSPLANT
     Dosage: 1.5 MILLIGRAM, BID
     Route: 065
  4. MYCOPHENOLATE MOFETIL. [Suspect]
     Active Substance: MYCOPHENOLATE MOFETIL
     Indication: RENAL TRANSPLANT
     Dosage: 540 MILLIGRAM, BID
     Route: 065

REACTIONS (20)
  - Lymphadenopathy [Recovered/Resolved]
  - Pharyngitis streptococcal [Unknown]
  - Abdominal pain [Recovered/Resolved]
  - Abdominal tenderness [Recovered/Resolved]
  - Lymphadenopathy mediastinal [Unknown]
  - Histoplasmosis disseminated [Unknown]
  - Pyrexia [Recovered/Resolved]
  - Renal impairment [Recovered/Resolved]
  - Pharyngitis [Unknown]
  - Weight decreased [Recovered/Resolved]
  - Drug interaction [Unknown]
  - Tonsillar exudate [Unknown]
  - Rash [Unknown]
  - Papule [Unknown]
  - Pancytopenia [Recovered/Resolved]
  - Retroperitoneal lymphadenopathy [Unknown]
  - Lung opacity [Unknown]
  - Skin exfoliation [Unknown]
  - Cytopenia [Unknown]
  - Drug level above therapeutic [Recovered/Resolved]
